FAERS Safety Report 16079175 (Version 6)
Quarter: 2020Q1

REPORT INFORMATION
  Report Type: Spontaneous
  Country: IT (occurrence: IT)
  Receive Date: 20190315
  Receipt Date: 20200217
  Transmission Date: 20200409
  Serious: Yes (Other)
  Sender: FDA-Public Use
  Company Number: IT-PFIZER INC-2019108311

PATIENT
  Sex: Female

DRUGS (9)
  1. AMLODIPINE BESILATE [Suspect]
     Active Substance: AMLODIPINE BESYLATE
     Indication: HYPERTENSION
     Dosage: 5 MG, DAILY (1 TABLET A DAY)
     Route: 065
  2. JINARC [Suspect]
     Active Substance: TOLVAPTAN
     Dosage: 45 MG, UNK
  3. DIDROGYL [Suspect]
     Active Substance: CALCIFEDIOL
     Dosage: 25 GTT, WEEKLY (25 DROPS/ ONCE A WEEK)
     Route: 065
  4. TRIATEC (RAMIPRIL) [Suspect]
     Active Substance: RAMIPRIL
     Indication: HYPERTENSION
     Dosage: 1 DF, UNK (2.5 MG- 1 TABLET FOR 2 / DIE)
     Route: 065
  5. JINARC [Suspect]
     Active Substance: TOLVAPTAN
     Dosage: 60 MG, UNK
  6. TRIATEC-30 [Suspect]
     Active Substance: ACETAMINOPHEN\CODEINE PHOSPHATE
     Dosage: 1 DF, UNK (2.5 MG- 1 TABLET FOR 2 / DIE)
     Route: 065
  7. EUTIROX [Suspect]
     Active Substance: LEVOTHYROXINE SODIUM
     Indication: HYPOTHYROIDISM
     Dosage: 75 ?G, UNK (75 MCG/DIE)
     Route: 065
  8. JINARC [Suspect]
     Active Substance: TOLVAPTAN
     Dosage: 15 MG, UNK
     Route: 065
     Dates: start: 20180901
  9. JINARC [Suspect]
     Active Substance: TOLVAPTAN
     Dosage: 30 MG, UNK

REACTIONS (1)
  - Atrial fibrillation [Recovered/Resolved]

NARRATIVE: CASE EVENT DATE: 20190214
